FAERS Safety Report 12272515 (Version 4)
Quarter: 2016Q2

REPORT INFORMATION
  Report Type: Spontaneous
  Country: US (occurrence: US)
  Receive Date: 20160415
  Receipt Date: 20160513
  Transmission Date: 20160815
  Serious: Yes (Hospitalization, Other)
  Sender: FDA-Public Use
  Company Number: US-JNJFOC-20160406011

PATIENT
  Age: 78 Year
  Sex: Female
  Weight: 56.7 kg

DRUGS (9)
  1. ZOLPIDEM [Concomitant]
     Active Substance: ZOLPIDEM\ZOLPIDEM TARTRATE
     Indication: SLEEP DISORDER
     Route: 065
  2. TYLENOL WITH CODEINE [Suspect]
     Active Substance: ACETAMINOPHEN\CODEINE PHOSPHATE
     Indication: DIARRHOEA
     Route: 048
     Dates: start: 20160303
  3. TYLENOL WITH CODEINE [Suspect]
     Active Substance: ACETAMINOPHEN\CODEINE PHOSPHATE
     Indication: TOOTHACHE
     Dosage: 2 TABLET IN 6:30-7:30 AM OR 2 AT 8:0-9:0 PM, 2 IF DIARRHOEA AND 1 ONLY IF LOW AMOUNT OF DIARRHOEA.
     Route: 048
  4. LIALDA [Concomitant]
     Active Substance: MESALAMINE
     Indication: CROHN^S DISEASE
     Route: 065
  5. AGGRENOX [Concomitant]
     Active Substance: ASPIRIN\DIPYRIDAMOLE
     Indication: ANTICOAGULANT THERAPY
     Route: 065
  6. TYLENOL WITH CODEINE [Suspect]
     Active Substance: ACETAMINOPHEN\CODEINE PHOSPHATE
     Indication: DIARRHOEA
     Dosage: 2 TABLET IN 6:30-7:30 AM OR 2 AT 8:0-9:0 PM, 2 IF DIARRHOEA AND 1 ONLY IF LOW AMOUNT OF DIARRHOEA.
     Route: 048
  7. SENSIPAR [Concomitant]
     Active Substance: CINACALCET HYDROCHLORIDE
     Indication: THYROID DISORDER
     Route: 065
  8. ASPIRIN. [Concomitant]
     Active Substance: ASPIRIN
     Indication: BACK PAIN
     Route: 065
  9. TYLENOL WITH CODEINE [Suspect]
     Active Substance: ACETAMINOPHEN\CODEINE PHOSPHATE
     Indication: TOOTHACHE
     Route: 048
     Dates: start: 20160303

REACTIONS (8)
  - Product use issue [Recovered/Resolved]
  - Nephrolithiasis [Recovered/Resolved]
  - Off label use [Recovered/Resolved]
  - Therapeutic response unexpected [Unknown]
  - Drug abuse [Recovered/Resolved]
  - Muscle spasms [Recovered/Resolved]
  - Incorrect drug administration duration [Recovered/Resolved]
  - Renal injury [Recovered/Resolved]

NARRATIVE: CASE EVENT DATE: 20160302
